FAERS Safety Report 4450475-7 (Version None)
Quarter: 2004Q3

REPORT INFORMATION
  Report Type: 
  Country: None (occurrence: None)
  Receive Date: 20040914
  Receipt Date: 20040827
  Transmission Date: 20050211
  Serious: Yes (Hospitalization)
  Sender: FDA-Public Use
  Company Number: F01200400794

PATIENT
  Age: 70 Year
  Sex: Female

DRUGS (21)
  1. OXALIPLATIN - SOLUTION - 85 MG/M2 [Suspect]
     Indication: COLORECTAL CANCER
     Dosage: 85 MG/M2 Q2W INTRAVENOUS NOS
     Route: 042
     Dates: start: 20040330, end: 20040330
  2. FLUOROURACIL [Suspect]
     Dosage: 400 MG/M2 BOLUS THEN 2400 MG/M2 AS 46 HOURS INFUSION Q2W INTRAVENOUS NOS
     Route: 042
     Dates: start: 20040330, end: 20040401
  3. LEUCOVORIN - SOLUTION - 350 MG [Suspect]
     Dosage: 350 MG Q2W INTRAVENOUS NOS
     Route: 042
     Dates: start: 20040330, end: 20040330
  4. AVASTIN [Suspect]
     Dosage: 5 MG/KG OVER 30-90 MINUTES IV INFUSION ON DAY 1, Q2W INTRAVENOUS NOS
     Route: 042
     Dates: start: 20040330, end: 20040330
  5. PHENERGAN [Concomitant]
  6. FERROUS SULFATE TAB [Concomitant]
  7. SURFAK (DOCUSATE CALCIUM) [Concomitant]
  8. CALTRATE (CALCIUM CARBONATE) [Concomitant]
  9. BETAPACE [Concomitant]
  10. CIPRO [Concomitant]
  11. FLAGYL [Concomitant]
  12. PERCOCET (OXYCODONE HCL+PARACETAMOL) [Concomitant]
  13. AUGMENTIN [Concomitant]
  14. ASPIRIN [Concomitant]
  15. BENICAR [Concomitant]
  16. COMPAZINE [Concomitant]
  17. OXYCODONE HCL [Concomitant]
  18. METAMUCIL-2 [Concomitant]
  19. MULTIVITAMIN [Concomitant]
  20. FLECAINIDE ACETATE [Concomitant]
  21. ATACAND [Concomitant]

REACTIONS (33)
  - AORTIC VALVE INCOMPETENCE [None]
  - ARRHYTHMIA [None]
  - ASCITES [None]
  - ASPARTATE AMINOTRANSFERASE INCREASED [None]
  - ATRIAL FIBRILLATION [None]
  - BLOOD ALBUMIN DECREASED [None]
  - BLOOD ALKALINE PHOSPHATASE INCREASED [None]
  - BLOOD CALCIUM DECREASED [None]
  - BLOOD CREATININE INCREASED [None]
  - BLOOD GLUCOSE INCREASED [None]
  - BLOOD MAGNESIUM DECREASED [None]
  - BLOOD POTASSIUM DECREASED [None]
  - BLOOD SODIUM DECREASED [None]
  - BLOOD UREA INCREASED [None]
  - CLOSTRIDIUM COLITIS [None]
  - ECHOCARDIOGRAM ABNORMAL [None]
  - EJECTION FRACTION DECREASED [None]
  - ELECTROCARDIOGRAM QRS COMPLEX ABNORMAL [None]
  - ELECTROCARDIOGRAM QT PROLONGED [None]
  - ELECTROCARDIOGRAM ST SEGMENT ABNORMAL [None]
  - ELECTROCARDIOGRAM T WAVE ABNORMAL [None]
  - FLUID OVERLOAD [None]
  - GENERALISED OEDEMA [None]
  - HAEMOGLOBIN DECREASED [None]
  - HIATUS HERNIA [None]
  - METASTASES TO LIVER [None]
  - MITRAL VALVE INCOMPETENCE [None]
  - PLATELET COUNT DECREASED [None]
  - PLEURAL EFFUSION [None]
  - PROTEIN TOTAL DECREASED [None]
  - PULMONARY OEDEMA [None]
  - TRICUSPID VALVE INCOMPETENCE [None]
  - VENTRICULAR EXTRASYSTOLES [None]
